FAERS Safety Report 13903372 (Version 2)
Quarter: 2018Q1

REPORT INFORMATION
  Report Type: Spontaneous
  Country: JP (occurrence: JP)
  Receive Date: 20170824
  Receipt Date: 20180319
  Transmission Date: 20180508
  Serious: Yes (Death, Other)
  Sender: FDA-Public Use
  Company Number: JP-ALLERGAN-1747405US

PATIENT
  Age: 78 Year
  Sex: Male
  Weight: 53.4 kg

DRUGS (6)
  1. GASMOTIN [Concomitant]
     Active Substance: MOSAPRIDE CITRATE
  2. SENNOSIDE [Concomitant]
     Active Substance: SENNOSIDES
  3. MESALAZINE UNK [Suspect]
     Active Substance: MESALAMINE
     Indication: SMALL INTESTINE ULCER
     Dosage: UNK
     Route: 065
  4. ALLOZYM [Concomitant]
     Active Substance: ALLOPURINOL
  5. NORVASC [Concomitant]
     Active Substance: AMLODIPINE BESYLATE
  6. BAYASPIRIN [Concomitant]
     Active Substance: ASPIRIN
     Dosage: UNK
     Dates: start: 2005

REACTIONS (7)
  - Chronic kidney disease [Fatal]
  - Embolism [Unknown]
  - Pulmonary congestion [Fatal]
  - Hypoproteinaemia [Unknown]
  - Cardiac failure [Fatal]
  - Off label use [Unknown]
  - Arteriosclerosis [Unknown]
